FAERS Safety Report 19681487 (Version 1)
Quarter: 2021Q3

REPORT INFORMATION
  Report Type: Spontaneous
  Country: DE (occurrence: DE)
  Receive Date: 20210810
  Receipt Date: 20210810
  Transmission Date: 20211014
  Serious: Yes (Hospitalization, Other)
  Sender: FDA-Public Use
  Company Number: DE-ALLERGAN-2127573US

PATIENT
  Sex: Male

DRUGS (2)
  1. LEVOTHYROXIN [Concomitant]
     Active Substance: LEVOTHYROXINE
     Indication: PRODUCT USED FOR UNKNOWN INDICATION
     Dosage: 125 ?G, QD 1?0?0?0
     Route: 065
  2. ESCITALOPRAM OXALATE ? BP [Suspect]
     Active Substance: ESCITALOPRAM OXALATE
     Indication: PRODUCT USED FOR UNKNOWN INDICATION
     Dosage: 10 MG, QD 1?0?0?0
     Route: 065

REACTIONS (7)
  - Seizure [Unknown]
  - Fall [Unknown]
  - Retrograde amnesia [Unknown]
  - Memory impairment [Unknown]
  - Burnout syndrome [Unknown]
  - Disorientation [Unknown]
  - Insomnia [Unknown]
